FAERS Safety Report 16327626 (Version 1)
Quarter: 2019Q2

REPORT INFORMATION
  Report Type: Not Available
  Country: US (occurrence: US)
  Receive Date: 20190517
  Receipt Date: 20190517
  Transmission Date: 20190711
  Serious: No
  Sender: FDA-Public Use
  Company Number: US-BAUSCH-BL-2019-014321

PATIENT

DRUGS (8)
  1. BUSPAR [Concomitant]
     Active Substance: BUSPIRONE HYDROCHLORIDE
     Indication: ANXIETY
     Dosage: 10 MG, QD
     Route: 048
  2. LITHIUM. [Concomitant]
     Active Substance: LITHIUM
     Indication: BIPOLAR DISORDER
     Dosage: 900 MG, QD
     Route: 048
  3. ADDERALL [Concomitant]
     Active Substance: AMPHETAMINE ASPARTATE\AMPHETAMINE SULFATE\DEXTROAMPHETAMINE SACCHARATE\DEXTROAMPHETAMINE SULFATE
     Indication: ATTENTION DEFICIT/HYPERACTIVITY DISORDER
     Dosage: 40 MG, QD
     Route: 048
  4. TRULANCE [Suspect]
     Active Substance: PLECANATIDE
     Indication: IRRITABLE BOWEL SYNDROME
     Dosage: 3 MG, QD
     Route: 048
     Dates: start: 201803, end: 20190318
  5. HYDROXYZINE [Concomitant]
     Active Substance: HYDROXYZINE HYDROCHLORIDE
     Indication: ANXIETY
     Dosage: 25 MG, QD
     Route: 048
  6. TOPAMAX [Concomitant]
     Active Substance: TOPIRAMATE
     Indication: MIGRAINE
     Dosage: 50 MG, QD
     Route: 048
  7. CITALOPRAM [Concomitant]
     Active Substance: CITALOPRAM HYDROBROMIDE
     Indication: DEPRESSION
     Dosage: 30 MG, QD
     Route: 048
  8. SEROQUEL [Concomitant]
     Active Substance: QUETIAPINE FUMARATE
     Indication: SLEEP DISORDER
     Dosage: 500 MG, QD
     Route: 048

REACTIONS (7)
  - Bedridden [Recovered/Resolved]
  - Dizziness [Recovered/Resolved]
  - Pyrexia [Recovered/Resolved]
  - Inability to afford medication [Unknown]
  - Bronchitis [Recovering/Resolving]
  - Gastroenteritis viral [Recovered/Resolved]
  - Diarrhoea [Recovered/Resolved]

NARRATIVE: CASE EVENT DATE: 201903
